FAERS Safety Report 5473495-2 (Version None)
Quarter: 2007Q4

REPORT INFORMATION
  Report Type: 
  Country: None (occurrence: None)
  Receive Date: 20071001
  Receipt Date: 20070921
  Transmission Date: 20080405
  Serious: Yes (Hospitalization)
  Sender: FDA-Public Use
  Company Number: US-ELI_LILLY_AND_COMPANY-US200709004518

PATIENT
  Age: 49 Year
  Sex: Male
  Weight: 77.097 kg

DRUGS (6)
  1. ZYPREXA [Suspect]
     Indication: SCHIZOAFFECTIVE DISORDER
     Dosage: 60 MG, UNK
     Dates: start: 19960101
  2. ZYPREXA [Suspect]
     Dosage: 30 MG, UNK
  3. ZYPREXA [Suspect]
     Dosage: 20 MG, UNK
  4. EFFEXOR [Concomitant]
     Indication: DEPRESSION
  5. KLONOPIN [Concomitant]
     Indication: PANIC ATTACK
  6. TRILEPTAL [Concomitant]
     Indication: BIPOLAR DISORDER

REACTIONS (3)
  - GLUCOSE URINE PRESENT [None]
  - OVERDOSE [None]
  - PSYCHOTIC DISORDER [None]
